FAERS Safety Report 9225922 (Version 1)
Quarter: 2013Q2

REPORT INFORMATION
  Report Type: Spontaneous
  Country: US (occurrence: US)
  Receive Date: 20130411
  Receipt Date: 20130411
  Transmission Date: 20140414
  Serious: No
  Sender: FDA-Public Use
  Company Number: US-ASTELLAS-2012US012530

PATIENT
  Sex: Male
  Weight: 104 kg

DRUGS (2)
  1. PROTOPIC [Suspect]
     Indication: PSORIASIS
     Dosage: UNK
     Route: 061
     Dates: start: 201208
  2. CLOBEX                             /00012002/ [Concomitant]
     Indication: PSORIASIS
     Dosage: UNK
     Route: 061
     Dates: start: 201208

REACTIONS (3)
  - Drug ineffective [Unknown]
  - Off label use [Unknown]
  - Nail avulsion [Unknown]
